FAERS Safety Report 9009465 (Version 2)
Quarter: 2013Q1

REPORT INFORMATION
  Report Type: Spontaneous
  Country: US (occurrence: US)
  Receive Date: 20130112
  Receipt Date: 20130130
  Transmission Date: 20140127
  Serious: Yes (Other)
  Sender: FDA-Public Use
  Company Number: US-009507513-0901USA02231

PATIENT
  Age: 43 Year
  Sex: Female
  Weight: 74.84 kg

DRUGS (6)
  1. SINGULAIR [Suspect]
     Indication: MULTIPLE ALLERGIES
     Dosage: 10 MG, QD
     Route: 048
     Dates: start: 20050101, end: 20080823
  2. SINGULAIR [Suspect]
     Indication: ASTHMA
  3. ADVAIR [Suspect]
     Indication: ASTHMA
     Dosage: 250/50, QD
     Route: 055
     Dates: start: 20080701, end: 20080823
  4. FLONASE [Concomitant]
     Route: 045
  5. PAXIL [Concomitant]
     Dosage: 20 MG, UNK
  6. ALBUTEROL [Concomitant]

REACTIONS (3)
  - Anxiety [Recovering/Resolving]
  - Depression [Recovering/Resolving]
  - Suicidal ideation [Recovering/Resolving]
